FAERS Safety Report 25618673 (Version 3)
Quarter: 2025Q3

REPORT INFORMATION
  Report Type: Other
  Country: US (occurrence: US)
  Receive Date: 20250729
  Receipt Date: 20250819
  Transmission Date: 20251020
  Serious: Yes (Hospitalization, Other)
  Sender: TRAVERE THERAPEUTICS
  Company Number: US-TRAVERE-2025TVT01245

PATIENT
  Age: 57 Year
  Sex: Female

DRUGS (1)
  1. FILSPARI [Suspect]
     Active Substance: SPARSENTAN
     Indication: IgA nephropathy
     Route: 048
     Dates: start: 20250719

REACTIONS (9)
  - Blood creatinine increased [Unknown]
  - Dehydration [Unknown]
  - Complications of transplanted kidney [Unknown]
  - Ophthalmic herpes zoster [Unknown]
  - Urinary tract infection [Unknown]
  - Peripheral swelling [Unknown]
  - Asthenia [Unknown]
  - Decreased appetite [Unknown]
  - Nausea [Unknown]
